FAERS Safety Report 6877471-4 (Version None)
Quarter: 2010Q2

REPORT INFORMATION
  Report Type: 
  Country: None (occurrence: None)
  Receive Date: 20100616
  Receipt Date: 20100513
  Transmission Date: 20101027
  Serious: No
  Sender: FDA-Public Use
  Company Number: DSA_43143_2010

PATIENT
  Sex: Male

DRUGS (2)
  1. XENAZINE [Suspect]
     Indication: TOURETTE'S DISORDER
     Dosage: DF ORAL, 25 MG TID ORAL
     Route: 048
  2. KEPPRA [Concomitant]

REACTIONS (3)
  - ARTHRALGIA [None]
  - FEELING ABNORMAL [None]
  - JOINT STIFFNESS [None]
